FAERS Safety Report 5953405-1 (Version None)
Quarter: 2008Q4

REPORT INFORMATION
  Report Type: 
  Country: None (occurrence: None)
  Receive Date: 20081114
  Receipt Date: 20081103
  Transmission Date: 20090506
  Serious: Yes (Hospitalization, Other)
  Sender: FDA-Public Use
  Company Number: US-MERCK-0811USA00968

PATIENT
  Age: 52 Year
  Sex: Male

DRUGS (7)
  1. PRINIVIL [Suspect]
     Route: 048
  2. IBUPROFEN TABLETS [Suspect]
     Indication: HEADACHE
     Route: 065
  3. CARVEDILOL [Suspect]
     Route: 065
  4. SPIRONOLACTONE [Suspect]
     Route: 065
  5. FUROSEMIDE [Suspect]
     Route: 065
  6. LIDOCAINE HYDROCHLORIDE [Suspect]
     Indication: ORAL PAIN
     Route: 048
  7. DECADRON [Suspect]
     Route: 048

REACTIONS (16)
  - ADHESION [None]
  - BLINDNESS [None]
  - BREATH ODOUR [None]
  - COMA [None]
  - CONJUNCTIVAL SCAR [None]
  - LYMPHOCYTIC INFILTRATION [None]
  - MEMORY IMPAIRMENT [None]
  - ORAL DISORDER [None]
  - ORAL PAIN [None]
  - ORAL SUBMUCOSAL FIBROSIS [None]
  - POOR PERSONAL HYGIENE [None]
  - SEPSIS [None]
  - SKIN DEPIGMENTATION [None]
  - SPEECH DISORDER [None]
  - SYMBLEPHARON [None]
  - TOXIC EPIDERMAL NECROLYSIS [None]
